FAERS Safety Report 9798652 (Version 1)
Quarter: 2014Q1

REPORT INFORMATION
  Report Type: Spontaneous
  Country: US (occurrence: US)
  Receive Date: 20140106
  Receipt Date: 20140106
  Transmission Date: 20141002
  Serious: No
  Sender: FDA-Public Use
  Company Number: US-GILEAD-2010-0029587

PATIENT
  Age: 67 Year
  Sex: Female
  Weight: 88.2 kg

DRUGS (14)
  1. LETAIRIS [Suspect]
     Indication: PULMONARY ARTERIAL HYPERTENSION
     Route: 048
  2. DILTIAZEM [Concomitant]
  3. DIOVAN [Concomitant]
  4. COUMADIN [Concomitant]
  5. LASIX [Concomitant]
  6. ATENOLOL [Concomitant]
  7. TRIAMT/ HCTZ [Concomitant]
  8. CLONIDINE [Concomitant]
  9. LEVOTHROID [Concomitant]
  10. COMBIVENT [Concomitant]
  11. ALENDRONATE [Concomitant]
  12. CALCIUM + D [Concomitant]
  13. MULTIVITAMIN [Concomitant]
  14. POT CL [Concomitant]

REACTIONS (3)
  - Headache [Recovering/Resolving]
  - Swelling [Recovering/Resolving]
  - Dyspnoea [Recovering/Resolving]
